FAERS Safety Report 6380800-1 (Version None)
Quarter: 2009Q3

REPORT INFORMATION
  Report Type: 
  Country: None (occurrence: None)
  Receive Date: 20090925
  Receipt Date: 20090925
  Transmission Date: 20100115
  Serious: Yes (Hospitalization)
  Sender: FDA-Public Use
  Company Number: None

PATIENT
  Age: 63 Year
  Sex: Female

DRUGS (2)
  1. ARIXTRA [Suspect]
     Indication: DEEP VEIN THROMBOSIS
     Dosage: 10 MG DAILY SQ
     Route: 058
     Dates: start: 20080912, end: 20081211
  2. ARIXTRA [Suspect]
     Indication: PULMONARY EMBOLISM
     Dosage: 10 MG DAILY SQ
     Route: 058
     Dates: start: 20080912, end: 20081211

REACTIONS (2)
  - PNEUMONIA [None]
  - WEIGHT DECREASED [None]
